FAERS Safety Report 8653216 (Version 2)
Quarter: 2012Q4

REPORT INFORMATION
  Report Type: 
  Country: US (occurrence: US)
  Receive Date: 20120706
  Receipt Date: 20121112
  Transmission Date: 20130627
  Serious: Yes (Disabling)
  Sender: FDA-Public Use
  Company Number: US-US-EMD SERONO, INC.-7144249

PATIENT
  Sex: Male
  Weight: 66 kg

DRUGS (8)
  1. REBIF [Suspect]
     Indication: MULTIPLE SCLEROSIS
     Route: 058
     Dates: start: 20021216
  2. LISINOPRIL AND HCTZ [Concomitant]
     Indication: HYPERTENSION
  3. METHOTREXATE [Concomitant]
     Indication: WHITE BLOOD CELL COUNT
  4. FOLIC ACID [Concomitant]
     Indication: SUPPLEMENTATION THERAPY
  5. LEVOTHYROXINE [Concomitant]
     Indication: HYPOTHYROIDISM
  6. FINASTRINE [Concomitant]
     Indication: PROSTATOMEGALY
  7. MECLIZINE [Concomitant]
     Indication: DIZZINESS
  8. BACLOFEN [Concomitant]
     Indication: MUSCLE SPASMS

REACTIONS (2)
  - Multiple sclerosis [Recovering/Resolving]
  - Injection site erythema [Unknown]
